FAERS Safety Report 9030670 (Version 1)
Quarter: 2013Q1

REPORT INFORMATION
  Report Type: Spontaneous
  Country: FR (occurrence: FR)
  Receive Date: 20130123
  Receipt Date: 20130123
  Transmission Date: 20140127
  Serious: Yes (Other)
  Sender: FDA-Public Use
  Company Number: FR-009507513-1301FRA009448

PATIENT
  Age: 25 Year
  Sex: Female

DRUGS (1)
  1. ZOELY [Suspect]
     Indication: CONTRACEPTION
     Dosage: UNK
     Route: 048
     Dates: start: 20120613, end: 201301

REACTIONS (1)
  - Phlebitis superficial [Unknown]
